FAERS Safety Report 5718343-8 (Version None)
Quarter: 2008Q2

REPORT INFORMATION
  Report Type: 
  Country: None (occurrence: None)
  Receive Date: 20080425
  Receipt Date: 20080423
  Transmission Date: 20081010
  Serious: Yes (Death, Life-Threatening)
  Sender: FDA-Public Use
  Company Number: MX-BRISTOL-MYERS SQUIBB COMPANY-14162275

PATIENT
  Age: 66 Year
  Sex: Female

DRUGS (3)
  1. CISPLATIN [Suspect]
     Indication: GASTRIC CANCER
     Route: 041
     Dates: start: 20070102, end: 20070102
  2. FLUOROURACIL [Suspect]
     Indication: GASTRIC CANCER
     Dosage: CYCLE 1, DAY 1-5 EVERY 28 DAYS.LAST DOSE ON 07-JAN-2007.
     Route: 041
     Dates: start: 20070102, end: 20070106
  3. GLYBURIDE [Concomitant]
     Indication: TYPE 2 DIABETES MELLITUS
     Route: 048
     Dates: start: 20040101

REACTIONS (2)
  - MALIGNANT NEOPLASM PROGRESSION [None]
  - NEUTROPENIA [None]
